FAERS Safety Report 24437995 (Version 2)
Quarter: 2024Q4

REPORT INFORMATION
  Report Type: Report from Study
  Country: AU (occurrence: AU)
  Receive Date: 20241015
  Receipt Date: 20241022
  Transmission Date: 20250115
  Serious: Yes (Other)
  Sender: TAKEDA
  Company Number: AU-JNJFOC-20241034134

PATIENT
  Sex: Male

DRUGS (6)
  1. BORTEZOMIB [Suspect]
     Active Substance: BORTEZOMIB
     Indication: Plasma cell myeloma
     Dosage: UNK
     Route: 065
  2. BORTEZOMIB [Suspect]
     Active Substance: BORTEZOMIB
     Indication: Haemorrhage
  3. DEXAMETHASONE [Suspect]
     Active Substance: DEXAMETHASONE
     Indication: Plasma cell myeloma
     Dosage: UNK
     Route: 065
  4. DEXAMETHASONE [Suspect]
     Active Substance: DEXAMETHASONE
     Indication: Haemorrhage
  5. BORTEZOMIB [Suspect]
     Active Substance: BORTEZOMIB
     Indication: Plasma cell myeloma
     Dosage: UNK
     Route: 065
  6. BORTEZOMIB [Suspect]
     Active Substance: BORTEZOMIB
     Indication: Haemorrhage

REACTIONS (1)
  - Haemorrhage [Unknown]
